FAERS Safety Report 4846664-X (Version None)
Quarter: 2005Q4

REPORT INFORMATION
  Report Type: 
  Country: None (occurrence: None)
  Receive Date: 20051201
  Receipt Date: 20051128
  Transmission Date: 20060501
  Serious: Yes (Death)
  Sender: FDA-Public Use
  Company Number: 200510660BVD

PATIENT
  Age: 71 Year
  Sex: Male
  Weight: 90 kg

DRUGS (5)
  1. AVELOX [Suspect]
     Indication: BRONCHITIS BACTERIAL
     Dosage: 400 MG, TOTAL DAILY, ORAL
     Route: 048
     Dates: start: 20050314
  2. ALLOPURINOL [Concomitant]
  3. BISOPROLOL [Concomitant]
  4. ENALAPRIL [Concomitant]
  5. FUROSEMID - SLOW RELEASE [Concomitant]

REACTIONS (1)
  - SUDDEN DEATH [None]
